FAERS Safety Report 7126244-6 (Version None)
Quarter: 2010Q4

REPORT INFORMATION
  Report Type: 
  Country: None (occurrence: None)
  Receive Date: 20101129
  Receipt Date: 20101124
  Transmission Date: 20110411
  Serious: Yes (Other)
  Sender: FDA-Public Use
  Company Number: TW-BRISTOL-MYERS SQUIBB COMPANY-15399744

PATIENT
  Age: 82 Year
  Sex: Female

DRUGS (5)
  1. IRBESARTAN [Interacting]
  2. ATENOLOL [Suspect]
  3. ACTIVASE [Interacting]
     Dosage: 0.75 MG/KG
  4. PROPAFENONE HCL [Suspect]
  5. INDAPAMIDE [Suspect]

REACTIONS (3)
  - ANGIOEDEMA [None]
  - CEREBRAL INFARCTION [None]
  - DRUG INTERACTION [None]
